FAERS Safety Report 5934522-9 (Version None)
Quarter: 2008Q4

REPORT INFORMATION
  Report Type: 
  Country: None (occurrence: None)
  Receive Date: 20081027
  Receipt Date: 20081014
  Transmission Date: 20090506
  Serious: Yes (Hospitalization)
  Sender: FDA-Public Use
  Company Number: 002#1#2008-00050

PATIENT
  Age: 79 Year
  Sex: Male
  Weight: 93.441 kg

DRUGS (23)
  1. NEUPRO-PATCH-DOSE - UNKNOWN (ROTIGOTINE) [Suspect]
     Indication: PARKINSON'S DISEASE
     Dosage: 6MG/24H, 1 IN 1 D, TRANSDERMAL, 2MG/24H, 1 IN 1 D, TRANSDERMAL, 4MG/24H, 1 IN 1 D, TRANSDERMAL
     Route: 062
     Dates: start: 20070913, end: 20070919
  2. NEUPRO-PATCH-DOSE - UNKNOWN (ROTIGOTINE) [Suspect]
     Indication: PARKINSON'S DISEASE
     Dosage: 6MG/24H, 1 IN 1 D, TRANSDERMAL, 2MG/24H, 1 IN 1 D, TRANSDERMAL, 4MG/24H, 1 IN 1 D, TRANSDERMAL
     Route: 062
     Dates: start: 20070920, end: 20070928
  3. NEUPRO-PATCH-DOSE - UNKNOWN (ROTIGOTINE) [Suspect]
     Indication: PARKINSON'S DISEASE
     Dosage: 6MG/24H, 1 IN 1 D, TRANSDERMAL, 2MG/24H, 1 IN 1 D, TRANSDERMAL, 4MG/24H, 1 IN 1 D, TRANSDERMAL
     Route: 062
     Dates: start: 20070929, end: 20080116
  4. ZYVOX [Concomitant]
  5. REQUIP [Concomitant]
  6. SINEMET [Concomitant]
  7. CELEXA [Concomitant]
  8. CARDURA [Concomitant]
  9. COMTAN [Concomitant]
  10. SINEMENT CR [Concomitant]
  11. SEROQUEL [Concomitant]
  12. PREMARIN [Concomitant]
  13. FLONASE [Concomitant]
  14. TENORMIN [Concomitant]
  15. LASIX [Concomitant]
  16. ZANTAC [Concomitant]
  17. DULCOLAX [Concomitant]
  18. MIRALAX [Concomitant]
  19. SENNA [Concomitant]
  20. ASPIRIN [Concomitant]
  21. ES TYLENOL [Concomitant]
  22. OSCAL D [Concomitant]
  23. SORBITOL [Concomitant]

REACTIONS (13)
  - AGITATION [None]
  - BALANCE DISORDER [None]
  - CARDIAC PACEMAKER MALFUNCTION [None]
  - COMPULSIVE SEXUAL BEHAVIOUR [None]
  - CONDITION AGGRAVATED [None]
  - CONFUSIONAL STATE [None]
  - GASTROINTESTINAL HAEMORRHAGE [None]
  - HALLUCINATION [None]
  - INCISION SITE INFECTION [None]
  - LEGAL PROBLEM [None]
  - LETHARGY [None]
  - SLEEP TERROR [None]
  - WEIGHT DECREASED [None]
